FAERS Safety Report 10672652 (Version 2)
Quarter: 2015Q2

REPORT INFORMATION
  Report Type: Report from Study
  Country: DE (occurrence: DE)
  Receive Date: 20141223
  Receipt Date: 20150421
  Transmission Date: 20150821
  Serious: Yes (Death, Hospitalization)
  Sender: FDA-Public Use
  Company Number: DE-CELGENE-DEU-2014123498

PATIENT
  Age: 82 Year
  Sex: Female
  Weight: 79 kg

DRUGS (5)
  1. ZAVEDOS [Concomitant]
     Active Substance: IDARUBICIN
     Indication: ACUTE MYELOID LEUKAEMIA
     Route: 065
     Dates: start: 20121109, end: 20121113
  2. AZACITIDINE INJECTABLE [Suspect]
     Active Substance: AZACITIDINE
     Indication: ACUTE MYELOID LEUKAEMIA
     Dosage: 75 DOSAGE FORMS
     Route: 058
     Dates: start: 20111010, end: 20121012
  3. RED BLOOD CELLS [Concomitant]
     Active Substance: HUMAN RED BLOOD CELL
     Indication: PRODUCT USED FOR UNKNOWN INDICATION
     Route: 041
  4. THIOGUANINE [Concomitant]
     Active Substance: THIOGUANINE
     Indication: ACUTE MYELOID LEUKAEMIA
     Route: 065
     Dates: start: 20121109, end: 20121113
  5. PREDNISONE. [Concomitant]
     Active Substance: PREDNISONE
     Indication: ACUTE MYELOID LEUKAEMIA
     Route: 065
     Dates: start: 20121109, end: 20121113

REACTIONS (1)
  - Bicytopenia [Fatal]

NARRATIVE: CASE EVENT DATE: 20121026
